FAERS Safety Report 7803119-8 (Version None)
Quarter: 2011Q4

REPORT INFORMATION
  Report Type: 
  Country: None (occurrence: None)
  Receive Date: 20111007
  Receipt Date: 20110929
  Transmission Date: 20120403
  Serious: Yes (Life-Threatening, Other)
  Sender: FDA-Public Use
  Company Number: BE-JNJFOC-20110908961

PATIENT
  Sex: Male
  Weight: 102 kg

DRUGS (6)
  1. STELARA [Suspect]
     Route: 058
     Dates: start: 20110826
  2. GLUCOSAMINE [Concomitant]
  3. NEBIVOLOL HCL [Concomitant]
  4. STELARA [Suspect]
     Indication: PRODUCT USED FOR UNKNOWN INDICATION
     Route: 058
     Dates: start: 20110501
  5. APOCARD RETARD [Concomitant]
  6. LANOXIN [Concomitant]

REACTIONS (1)
  - UROSEPSIS [None]
